FAERS Safety Report 22958876 (Version 5)
Quarter: 2024Q1

REPORT INFORMATION
  Report Type: Report from Study
  Country: US (occurrence: US)
  Receive Date: 20230919
  Receipt Date: 20240322
  Transmission Date: 20240410
  Serious: Yes (Hospitalization, Other)
  Sender: FDA-Public Use
  Company Number: US-ARGENX-2022-ARGX-US001965

PATIENT

DRUGS (2)
  1. VYVGART [Suspect]
     Active Substance: EFGARTIGIMOD ALFA-FCAB
     Indication: Myasthenia gravis
     Dosage: UNK
     Route: 042
  2. VYVGART [Suspect]
     Active Substance: EFGARTIGIMOD ALFA-FCAB
     Dosage: UNK
     Route: 042
     Dates: start: 20230403

REACTIONS (14)
  - Atrial fibrillation [Unknown]
  - Complication associated with device [Unknown]
  - Cardiac disorder [Unknown]
  - Atrial fibrillation [Unknown]
  - Herpes zoster [Unknown]
  - Pneumonia [Unknown]
  - Lower urinary tract symptoms [Unknown]
  - Chest pain [Unknown]
  - Rib fracture [Unknown]
  - Cardiac dysfunction [Unknown]
  - SARS-CoV-2 test positive [Unknown]
  - Blood pressure decreased [Unknown]
  - Heart rate increased [Unknown]
  - Drug ineffective [Unknown]

NARRATIVE: CASE EVENT DATE: 20220921
